FAERS Safety Report 4990618-X (Version None)
Quarter: 2006Q2

REPORT INFORMATION
  Report Type: 
  Country: None (occurrence: None)
  Receive Date: 20060427
  Receipt Date: 20060418
  Transmission Date: 20061013
  Serious: Yes (Hospitalization)
  Sender: FDA-Public Use
  Company Number: GXBR2006US00889

PATIENT
  Age: 78 Year
  Sex: Female
  Weight: 62.6 kg

DRUGS (1)
  1. AMIODARONE HCL [Suspect]
     Indication: CARDIAC FAILURE CONGESTIVE
     Dosage: 200 MG, BID, ORAL
     Route: 048
     Dates: start: 20060415, end: 20060416

REACTIONS (4)
  - BURNING SENSATION [None]
  - DRUG HYPERSENSITIVITY [None]
  - HALLUCINATION [None]
  - HEART RATE INCREASED [None]
